FAERS Safety Report 21737632 (Version 1)
Quarter: 2022Q4

REPORT INFORMATION
  Report Type: Spontaneous
  Country: FR (occurrence: FR)
  Receive Date: 20221216
  Receipt Date: 20221216
  Transmission Date: 20230112
  Serious: Yes (Hospitalization, Other)
  Sender: FDA-Public Use
  Company Number: None

PATIENT
  Age: 62 Year
  Sex: Female
  Weight: 82 kg

DRUGS (13)
  1. CARBOPLATIN [Suspect]
     Active Substance: CARBOPLATIN
     Indication: Lung adenocarcinoma
     Dosage: UNIT DOSE: 670 MG , FREQUENCY TIME : 1 TOTAL, DURATION : 1 DAYS
     Dates: start: 20221025, end: 20221025
  2. PACLITAXEL [Suspect]
     Active Substance: PACLITAXEL
     Indication: Lung adenocarcinoma
     Dosage: UNIT DOSE: 270 MG , FREQUENCY TIME : 1 TOTAL, DURATION : 1 DAYS
     Dates: start: 20221025, end: 20221025
  3. PEMBROLIZUMAB [Suspect]
     Active Substance: PEMBROLIZUMAB
     Indication: Lung adenocarcinoma
     Dosage: UNIT DOSE: 200 MG , FREQUENCY TIME : 1 TOTAL, DURATION : 1 DAYS
     Dates: start: 20221025, end: 20221025
  4. MORPHINE SULFATE [Concomitant]
     Active Substance: MORPHINE SULFATE
     Indication: Product used for unknown indication
     Dosage: STRENGTH :10 MG, UNIT DOSE : 10 MG, FREQUENCY TIME : 1 AS REQUIRED, THERAPY START DATE : ASKU
     Dates: end: 20221108
  5. SKENAN [Concomitant]
     Active Substance: MORPHINE SULFATE
     Indication: Product used for unknown indication
     Dosage: UNIT DOSE: 80 MG , FREQUENCY TIME : 1 DAY, THERAPY START DATE : ASKU
     Dates: end: 20221108
  6. DULOXETINE [Concomitant]
     Active Substance: DULOXETINE
     Indication: Product used for unknown indication
     Dosage: DULOXETINE BASE, UNIT DOSE: 60 MG , FREQUENCY TIME : 1 DAY, THERAPY START DATE : ASKU
     Dates: end: 20221108
  7. GABAPENTIN [Concomitant]
     Active Substance: GABAPENTIN
     Indication: Product used for unknown indication
     Dosage: UNIT DOSE: 600 MG, FREQUENCY TIME : 1 DAY
     Dates: start: 202211, end: 20221108
  8. MIANSERIN HYDROCHLORIDE [Concomitant]
     Active Substance: MIANSERIN HYDROCHLORIDE
     Indication: Product used for unknown indication
     Dosage: UNIT DOSE: 30 MG , FREQUENCY TIME : 1 DAY, THERAPY START DATE :ASKU
     Dates: end: 20221108
  9. LYRICA [Concomitant]
     Active Substance: PREGABALIN
     Indication: Product used for unknown indication
     Dosage: STRENGTH : 100 MG, UNIT DOSE: 100 MG , FREQUENCY TIME : 1 DAY, THERAPY START DATE: ASKU
     Dates: end: 20221108
  10. ESOMEPRAZOLE [Concomitant]
     Active Substance: ESOMEPRAZOLE
     Indication: Product used for unknown indication
     Dosage: UNIT DOSE: 40 MG , FREQUENCY TIME : 1 DAY, THERAPY START DATE: ASKU
     Dates: end: 20221108
  11. ATORVASTATIN [Concomitant]
     Active Substance: ATORVASTATIN
     Indication: Product used for unknown indication
     Dosage: UNIT DOSE: 20 MG , FREQUENCY TIME : 1 DAY, THERAPY START DATE : ASKU
     Dates: end: 20221108
  12. KARDEGIC [Concomitant]
     Active Substance: ASPIRIN DL-LYSINE
     Indication: Product used for unknown indication
     Dosage: KARDEGIC 75 MG, POWDER FOR ORAL SOLUTION IN SACHET-DOSE, UNIT DOSE: 75 MG , FREQUENCY TIME : 1 DAY,
  13. TRIMEPRAZINE [Concomitant]
     Active Substance: TRIMEPRAZINE
     Indication: Product used for unknown indication
     Dosage: UNIT DOSE: 10 MG , FREQUENCY TIME : 1 DAY, THERAPY START DATE : ASKU
     Dates: end: 20221108

REACTIONS (7)
  - Hepatitis [Recovered/Resolved]
  - Arthritis [Not Recovered/Not Resolved]
  - Acute kidney injury [Recovered/Resolved]
  - Purpura [Not Recovered/Not Resolved]
  - Confusional state [Recovered/Resolved]
  - Cerebral ischaemia [Not Recovered/Not Resolved]
  - Diarrhoea [Recovered/Resolved]

NARRATIVE: CASE EVENT DATE: 20221025
